FAERS Safety Report 9919337 (Version 3)
Quarter: 2014Q2

REPORT INFORMATION
  Report Type: Report from Study
  Country: GB (occurrence: GB)
  Receive Date: 20140224
  Receipt Date: 20140514
  Transmission Date: 20141212
  Serious: Yes (Hospitalization)
  Sender: FDA-Public Use
  Company Number: GB-009507513-1402USA009760

PATIENT
  Age: 70 Year
  Sex: Female

DRUGS (7)
  1. ALENDRONATE SODIUM [Suspect]
     Indication: OSTEOPOROSIS
     Dosage: 70 MG, QW
     Route: 048
     Dates: start: 20080131
  2. CALCIUM (UNSPECIFIED) [Concomitant]
     Indication: OSTEOPOROSIS
     Dosage: DAILY:500MG
     Route: 048
  3. VITAMIN D (UNSPECIFIED) [Concomitant]
     Indication: OSTEOPOROSIS
     Dosage: DAILY: 400IU
     Route: 048
  4. MOXONIDINE [Concomitant]
     Indication: HYPERTENSION
     Dosage: DAILY:200MG
     Route: 048
  5. NEBIVOLOL [Concomitant]
     Indication: HYPERTENSION
     Dosage: DAILY:5MG
     Route: 048
  6. LOSARTAN POTASSIUM [Concomitant]
     Indication: HYPERTENSION
     Dosage: DAILY: 50MG
     Route: 048
  7. HYDROCHLOROTHIAZIDE [Concomitant]
     Indication: HYPERTENSION
     Dosage: DAILY: 12.5MG
     Route: 048

REACTIONS (1)
  - Cerebral ischaemia [Recovered/Resolved]
